FAERS Safety Report 24181714 (Version 1)
Quarter: 2024Q3

REPORT INFORMATION
  Report Type: Spontaneous
  Country: IN (occurrence: IN)
  Receive Date: 20240807
  Receipt Date: 20240807
  Transmission Date: 20241016
  Serious: Yes (Other)
  Sender: HETERO
  Company Number: IN-AMAROX PHARMA-HET2024IN02564

PATIENT
  Age: 42 Year
  Sex: Male

DRUGS (1)
  1. IVABRADINE [Suspect]
     Active Substance: IVABRADINE
     Indication: Tachycardia
     Dosage: 2.5 MILLIGRAM, BID
     Route: 065

REACTIONS (1)
  - Delirium [Recovering/Resolving]
